FAERS Safety Report 9733321 (Version 1)
Quarter: 2013Q4

REPORT INFORMATION
  Report Type: Spontaneous
  Country: US (occurrence: US)
  Receive Date: 20131204
  Receipt Date: 20131204
  Transmission Date: 20140711
  Serious: No
  Sender: FDA-Public Use
  Company Number: US-ENDO PHARMACEUTICALS INC.-APIR20120001

PATIENT
  Sex: Male

DRUGS (3)
  1. ALPRAZOLAM IR TABLETS [Suspect]
     Indication: ANXIETY
     Route: 048
  2. ALPRAZOLAM IR TABLETS [Suspect]
     Route: 048
  3. ALPRAZOLAM IR TABLETS [Suspect]
     Route: 048

REACTIONS (2)
  - Abdominal discomfort [Unknown]
  - Drug ineffective [Recovering/Resolving]
